FAERS Safety Report 25938954 (Version 1)
Quarter: 2025Q4

REPORT INFORMATION
  Report Type: Spontaneous
  Country: CA (occurrence: CA)
  Receive Date: 20251019
  Receipt Date: 20251019
  Transmission Date: 20260118
  Serious: Yes (Death, Life-Threatening, Hospitalization, Other)
  Sender: HLS THERAPEUTICS
  Company Number: CA-HLS-202502759

PATIENT
  Age: 73 Year
  Sex: Female

DRUGS (13)
  1. CIPROFLOXACIN HYDROCHLORIDE [Suspect]
     Active Substance: CIPROFLOXACIN HYDROCHLORIDE
     Indication: Gastroenteritis
     Dosage: 2 EVERY 1 DAYS?AMOUNT: 400 MILLIGRAM
     Route: 042
  2. CLOZAPINE [Suspect]
     Active Substance: CLOZAPINE
     Indication: Major depression
     Dosage: EVERY 1 DAYS?AMOUNT: 200 MILLIGRAM?THERAPY DURATION: 5110 DAYS
     Route: 048
  3. CLOZAPINE [Suspect]
     Active Substance: CLOZAPINE
     Indication: Psychotic disorder
     Dosage: EVERY 1 DAYS?AMOUNT: 200 MILLIGRAM?THERAPY DURATION: 5110 DAYS
     Route: 048
  4. CLOZAPINE [Suspect]
     Active Substance: CLOZAPINE
     Indication: Major depression
     Route: 065
  5. CLOZAPINE [Suspect]
     Active Substance: CLOZAPINE
     Indication: Psychotic disorder
     Route: 065
  6. CLOZAPINE [Suspect]
     Active Substance: CLOZAPINE
     Indication: Major depression
     Route: 065
  7. CLOZAPINE [Suspect]
     Active Substance: CLOZAPINE
     Indication: Psychotic disorder
     Route: 065
  8. CYANOCOBALAMIN [Concomitant]
     Active Substance: CYANOCOBALAMIN
     Dosage: 1 EVERY 1 DAYS?AMOUNT: 1000 MICROGRAM?NOT SPECIFIED DOSAGE FORM
     Route: 048
  9. LACTULOSE [Concomitant]
     Active Substance: LACTULOSE
     Dosage: LIQUID ORAL DOSAGE FORM
     Route: 065
  10. METFORMIN [Concomitant]
     Active Substance: METFORMIN HYDROCHLORIDE
     Indication: Type 2 diabetes mellitus
     Dosage: 1 EVERY 1 DAYS?AMOUNT: 250 MILLIGRAM
     Route: 048
  11. METRONIDAZOLE [Suspect]
     Active Substance: METRONIDAZOLE
     Indication: Gastroenteritis
     Dosage: 3 EVERY 1 DAYS?AMOUNT: 500 MILLIGRAM?NOT SPECIFIED DOSAGE FORM
     Route: 042
  12. PANTOPRAZOLE [Concomitant]
     Active Substance: PANTOPRAZOLE
     Dosage: 2 EVERY 1 DAYS?AMOUNT: 40 MILLIGRAM
     Route: 042
  13. PANTOPRAZOLE [Concomitant]
     Active Substance: PANTOPRAZOLE
     Dosage: 2 EVERY 1 DAYS?AMOUNT: 40 MILLIGRAM?NOT SPECIFIED DOSAGE FORM
     Route: 048

REACTIONS (3)
  - Cardiac disorder [Fatal]
  - Gastroenteritis [Fatal]
  - Small intestinal obstruction [Fatal]
